FAERS Safety Report 7665080-9 (Version None)
Quarter: 2011Q3

REPORT INFORMATION
  Report Type: 
  Country: None (occurrence: None)
  Receive Date: 20110806
  Receipt Date: 20110216
  Transmission Date: 20111222
  Serious: No
  Sender: FDA-Public Use
  Company Number: US-ABBOTT-11P-163-0705721-00

PATIENT
  Sex: Female
  Weight: 63.56 kg

DRUGS (4)
  1. LORAZEPAM [Concomitant]
     Indication: ANXIETY
  2. NORVASC [Concomitant]
     Indication: BLOOD PRESSURE
  3. NIASPAN [Suspect]
     Indication: BLOOD CHOLESTEROL INCREASED
     Dates: start: 20110101, end: 20110201
  4. NIASPAN [Suspect]
     Indication: BLOOD CHOLESTEROL INCREASED
     Dates: start: 20110201

REACTIONS (3)
  - PRURITUS [None]
  - FLUSHING [None]
  - PAIN [None]
